FAERS Safety Report 5912459-9 (Version None)
Quarter: 2008Q4

REPORT INFORMATION
  Report Type: 
  Country: None (occurrence: None)
  Receive Date: 20081007
  Receipt Date: 20081007
  Transmission Date: 20090506
  Serious: Yes (Life-Threatening, Hospitalization)
  Sender: FDA-Public Use
  Company Number: None

PATIENT
  Age: 37 Year
  Sex: Male
  Weight: 131.5 kg

DRUGS (14)
  1. IRON DEXTRAN [Suspect]
     Indication: ANAEMIA
     Dosage: 2 GM ONCE IV DRIP
     Route: 041
     Dates: start: 20080626, end: 20080726
  2. WARFARIN SODIUM [Concomitant]
  3. DEPAKOTE [Concomitant]
  4. FLUOXETINE [Concomitant]
  5. KEPPRA [Concomitant]
  6. LAMICTAL [Concomitant]
  7. METOPROLOL TARTRATE [Concomitant]
  8. MS CONTIN [Concomitant]
  9. MULTIVITAMIN DAILY [Concomitant]
  10. PREDNISONE [Concomitant]
  11. PROAIR HFA [Concomitant]
  12. ROBAXIN [Concomitant]
  13. TRIPLEFLEX [Concomitant]
  14. VICODIN [Concomitant]

REACTIONS (2)
  - HYPOTENSION [None]
  - PYREXIA [None]
